FAERS Safety Report 7983328-8 (Version None)
Quarter: 2011Q4

REPORT INFORMATION
  Report Type: 
  Country: None (occurrence: None)
  Receive Date: 20111215
  Receipt Date: 20111212
  Transmission Date: 20120403
  Serious: No
  Sender: FDA-Public Use
  Company Number: US-BAYER-2011-120246

PATIENT

DRUGS (2)
  1. EXCEDRIN [ACETYLSALICYLIC ACID,CAFFEINE,PARACETAMOL] [Concomitant]
     Indication: TOOTHACHE
  2. ALEVE (CAPLET) [Suspect]
     Indication: TOOTHACHE

REACTIONS (2)
  - TOOTHACHE [None]
  - ABDOMINAL PAIN [None]
